FAERS Safety Report 10137553 (Version 1)
Quarter: 2014Q2

REPORT INFORMATION
  Report Type: Spontaneous
  Country: US (occurrence: US)
  Receive Date: 20140429
  Receipt Date: 20140429
  Transmission Date: 20141212
  Serious: Yes (Hospitalization)
  Sender: FDA-Public Use
  Company Number: US-BAYER-2014-059763

PATIENT
  Age: 34 Year
  Sex: Female
  Weight: 73 kg

DRUGS (6)
  1. YAZ [Suspect]
     Dosage: UNK
     Route: 048
  2. YASMIN [Suspect]
     Indication: MENORRHAGIA
     Dosage: UNK
     Route: 048
     Dates: start: 2007
  3. COREG [Concomitant]
     Dosage: 3.125 MG 2 TIMES DAILY
  4. LEXAPRO [Concomitant]
     Dosage: 20 MG DAILY
  5. SYNTHROID [Concomitant]
     Dosage: 112 MCG
  6. THIAMINE [Concomitant]

REACTIONS (1)
  - Pulmonary embolism [None]
